FAERS Safety Report 5721608-7 (Version None)
Quarter: 2008Q2

REPORT INFORMATION
  Report Type: 
  Country: None (occurrence: None)
  Receive Date: 20080429
  Receipt Date: 20070327
  Transmission Date: 20081010
  Serious: No
  Sender: FDA-Public Use
  Company Number: US-ASTRAZENECA-2007UW06293

PATIENT
  Age: 54 Year
  Sex: Female
  Weight: 99.3 kg

DRUGS (5)
  1. NEXIUM [Suspect]
     Indication: DYSPEPSIA
     Route: 048
     Dates: start: 20070319
  2. ASPIRIN [Concomitant]
  3. CENTRUM SILVER [Concomitant]
  4. CALCIUM [Concomitant]
  5. VITAMIN E [Concomitant]

REACTIONS (2)
  - VAGINAL DISCHARGE [None]
  - VULVOVAGINAL PRURITUS [None]
